FAERS Safety Report 4471567-2 (Version None)
Quarter: 2004Q4

REPORT INFORMATION
  Report Type: 
  Country: None (occurrence: None)
  Receive Date: 20041012
  Receipt Date: 20041008
  Transmission Date: 20050328
  Serious: Yes (Death, Hospitalization)
  Sender: FDA-Public Use
  Company Number: US-GLAXOSMITHKLINE-A0529122A

PATIENT
  Age: 34 Year
  Sex: Female

DRUGS (1)
  1. LAMICTAL [Suspect]
     Indication: BIPOLAR DISORDER
     Route: 048

REACTIONS (7)
  - ANKLE FRACTURE [None]
  - COMPLETED SUICIDE [None]
  - FALL [None]
  - INJURY ASPHYXIATION [None]
  - ROAD TRAFFIC ACCIDENT [None]
  - SUICIDAL IDEATION [None]
  - THINKING ABNORMAL [None]
